FAERS Safety Report 15884220 (Version 6)
Quarter: 2022Q1

REPORT INFORMATION
  Report Type: Spontaneous
  Country: US (occurrence: US)
  Receive Date: 20190129
  Receipt Date: 20220106
  Transmission Date: 20220423
  Serious: Yes (Other)
  Sender: FDA-Public Use
  Company Number: US-PFIZER INC-2019039013

PATIENT
  Age: 57 Year
  Sex: Male

DRUGS (1)
  1. XELJANZ XR [Suspect]
     Active Substance: TOFACITINIB CITRATE
     Dosage: 11 MG, 1X/DAY
     Route: 048

REACTIONS (7)
  - Autoimmune disorder [Unknown]
  - Muscular weakness [Unknown]
  - Mobility decreased [Unknown]
  - Arthropathy [Unknown]
  - Speech disorder [Unknown]
  - Bone disorder [Unknown]
  - Pain in extremity [Unknown]
